FAERS Safety Report 6011950-7 (Version None)
Quarter: 2008Q4

REPORT INFORMATION
  Report Type: 
  Country: None (occurrence: None)
  Receive Date: 20081218
  Receipt Date: 20081010
  Transmission Date: 20090506
  Serious: No
  Sender: FDA-Public Use
  Company Number: US-ASTRAZENECA-2008UW22338

PATIENT
  Age: 66 Year
  Sex: Female
  Weight: 63.5 kg

DRUGS (6)
  1. CRESTOR [Suspect]
     Indication: BLOOD CHOLESTEROL INCREASED
     Dosage: 5MG
     Route: 048
     Dates: start: 20081009
  2. GABAPINTON [Concomitant]
  3. LYRICA [Concomitant]
  4. LISINOPRIL [Concomitant]
     Route: 048
  5. ASPIRIN [Concomitant]
  6. DICYLOMINE [Concomitant]

REACTIONS (2)
  - CONSTIPATION [None]
  - FLATULENCE [None]
